FAERS Safety Report 8078163-9 (Version None)
Quarter: 2012Q1

REPORT INFORMATION
  Report Type: 
  Country: None (occurrence: None)
  Receive Date: 20120127
  Receipt Date: 20110415
  Transmission Date: 20120608
  Serious: No
  Sender: FDA-Public Use
  Company Number: US-BAUSCH-2011BL002502

PATIENT
  Age: 74 Year
  Sex: Female

DRUGS (6)
  1. ZYLET [Suspect]
     Indication: OCULAR HYPERAEMIA
     Route: 047
     Dates: start: 20110201, end: 20110301
  2. SOOTHE XP [Concomitant]
     Indication: DRY EYE
     Route: 047
  3. ZYLET [Suspect]
     Route: 047
     Dates: start: 20110201, end: 20110301
  4. ZYLET [Suspect]
     Indication: EYE INFECTION
     Route: 047
     Dates: start: 20110201, end: 20110301
  5. ZYLET [Suspect]
     Route: 047
     Dates: start: 20110201, end: 20110301
  6. XALATAN /SWE/ [Concomitant]
     Indication: GLAUCOMA
     Route: 047

REACTIONS (3)
  - EYE PAIN [None]
  - HEADACHE [None]
  - DRY EYE [None]
